FAERS Safety Report 18580794 (Version 1)
Quarter: 2020Q4

REPORT INFORMATION
  Report Type: Report from Study
  Country: GB (occurrence: GB)
  Receive Date: 20201204
  Receipt Date: 20201204
  Transmission Date: 20210114
  Serious: Yes (Other)
  Sender: FDA-Public Use
  Company Number: NVSC2020GB320149

PATIENT
  Sex: Male

DRUGS (1)
  1. LUTATHERA [Suspect]
     Active Substance: LUTETIUM OXODOTREOTIDE LU-177
     Indication: NEUROENDOCRINE TUMOUR
     Dosage: UNK
     Route: 042

REACTIONS (9)
  - Urinary tract infection [Unknown]
  - Gait disturbance [Unknown]
  - Decreased appetite [Unknown]
  - Pain [Unknown]
  - Lower respiratory tract infection [Unknown]
  - Hypersomnia [Unknown]
  - Fall [Unknown]
  - Lethargy [Unknown]
  - Abdominal pain [Unknown]
